APPROVED DRUG PRODUCT: FLOLIPID
Active Ingredient: SIMVASTATIN
Strength: 20MG/5ML
Dosage Form/Route: SUSPENSION;ORAL
Application: N206679 | Product #001
Applicant: SALERNO PHARMACEUTICALS
Approved: Apr 21, 2016 | RLD: Yes | RS: No | Type: RX

PATENTS:
Patent 9597289 | Expires: Feb 23, 2030
Patent 10300041 | Expires: Apr 26, 2027